FAERS Safety Report 11584052 (Version 2)
Quarter: 2016Q2

REPORT INFORMATION
  Report Type: Spontaneous
  Country: RO (occurrence: RO)
  Receive Date: 20151001
  Receipt Date: 20160420
  Transmission Date: 20160815
  Serious: Yes (Other)
  Sender: FDA-Public Use
  Company Number: RO-SUN PHARMACEUTICAL INDUSTRIES LTD-2015R1-103780

PATIENT
  Age: 51 Year
  Sex: Female

DRUGS (7)
  1. GEMCITABINE [Suspect]
     Active Substance: GEMCITABINE\GEMCITABINE HYDROCHLORIDE
     Indication: CHEMOTHERAPY
     Dosage: 1000MG/M2 IV DAYS 1,8; EVERY 21 DAYS
     Route: 042
  2. ZOLEDRONIC ACID [Suspect]
     Active Substance: ZOLEDRONIC ACID
     Indication: CHEMOTHERAPY
     Dosage: 4MG DAY 8, EVERY 21 DAYS
     Route: 042
  3. TOPOTECAN [Suspect]
     Active Substance: TOPOTECAN\TOPOTECAN HYDROCHLORIDE
     Indication: CHEMOTHERAPY
     Dosage: 1.5 MG/M2/ DAYIV, DAYS 1-5, EVERY 21 DAYS FOR 6 CYCLES
     Route: 042
  4. CARBOPLATIN. [Suspect]
     Active Substance: CARBOPLATIN
     Indication: CHEMOTHERAPY
     Dosage: AUC4 IV DAY 1; EVERY 21 DAYS
     Route: 042
  5. DOXORUBICIN [Suspect]
     Active Substance: DOXORUBICIN
     Indication: CHEMOTHERAPY
     Dosage: 50 MG/M2 IV, EVERY 28 DAYS
     Route: 042
  6. PACLITAXEL. [Suspect]
     Active Substance: PACLITAXEL
     Indication: CHEMOTHERAPY
     Dosage: 175 MG/M2 EVERY 3 WEEKS
     Route: 042
  7. CARBOPLATIN. [Suspect]
     Active Substance: CARBOPLATIN
     Indication: CHEMOTHERAPY
     Dosage: AUC6 DAY 1, EVERY 3 WEEKS
     Route: 065

REACTIONS (5)
  - Therapeutic response decreased [Unknown]
  - Stomatitis [Unknown]
  - Metastases to pleura [Unknown]
  - Condition aggravated [Unknown]
  - Metastases to bone [Unknown]
